FAERS Safety Report 25503830 (Version 1)
Quarter: 2025Q3

REPORT INFORMATION
  Report Type: Spontaneous
  Country: US (occurrence: None)
  Receive Date: 20250702
  Receipt Date: 20250702
  Transmission Date: 20251021
  Serious: Yes (Hospitalization)
  Sender: FDA-CTU
  Company Number: None

PATIENT
  Age: 24 Month
  Sex: Female
  Weight: 10.6 kg

DRUGS (2)
  1. CYCLOPHOSPHAMIDE [Suspect]
     Active Substance: CYCLOPHOSPHAMIDE
  2. TOPOTECAN [Suspect]
     Active Substance: TOPOTECAN HYDROCHLORIDE

REACTIONS (8)
  - Respiratory distress [None]
  - Respiratory failure [None]
  - Parainfluenzae virus infection [None]
  - Moraxella test positive [None]
  - Blood culture positive [None]
  - Citrobacter test positive [None]
  - Culture positive [None]
  - Hypercapnia [None]

NARRATIVE: CASE EVENT DATE: 20250605
